FAERS Safety Report 15658208 (Version 13)
Quarter: 2021Q3

REPORT INFORMATION
  Report Type: Report from Study
  Country: US (occurrence: US)
  Receive Date: 20181126
  Receipt Date: 20210924
  Transmission Date: 20211014
  Serious: Yes (Other)
  Sender: FDA-Public Use
  Company Number: PHEH2018US049044

PATIENT
  Age: 7 Year
  Sex: Female

DRUGS (2)
  1. AFINITOR [Suspect]
     Active Substance: EVEROLIMUS
     Indication: EPILEPSY
     Dosage: 5 MG, QD (SOLUTION)
     Route: 048
     Dates: start: 20180914
  2. AFINITOR [Suspect]
     Active Substance: EVEROLIMUS
     Dosage: 3 MG
     Route: 048

REACTIONS (6)
  - Brain neoplasm [Unknown]
  - Drug level above therapeutic [Unknown]
  - Anxiety [Unknown]
  - Seizure [Unknown]
  - Blood cholesterol increased [Unknown]
  - Abnormal behaviour [Unknown]

NARRATIVE: CASE EVENT DATE: 20180914
